FAERS Safety Report 8760095 (Version 6)
Quarter: 2018Q4

REPORT INFORMATION
  Report Type: Spontaneous
  Country: FR (occurrence: FR)
  Receive Date: 20120829
  Receipt Date: 20181128
  Transmission Date: 20190205
  Serious: Yes (Hospitalization)
  Sender: FDA-Public Use
  Company Number: FR-ASTRAZENECA-2012SE57086

PATIENT
  Age: 6308 Day
  Sex: Female
  Weight: 59.8 kg

DRUGS (13)
  1. PRIMPERAN [Concomitant]
     Active Substance: METOCLOPRAMIDE HYDROCHLORIDE
     Indication: DRUG THERAPY
     Dosage: 10.0MG ONCE/SINGLE ADMINISTRATION
     Dates: start: 20120723, end: 20120723
  2. DIPRIVAN [Concomitant]
     Active Substance: PROPOFOL
     Indication: ANAESTHESIA
     Dosage: 200.0MG ONCE/SINGLE ADMINISTRATION
     Dates: start: 20120723, end: 20120723
  3. ATARAX [Concomitant]
     Active Substance: HYDROXYZINE HYDROCHLORIDE
     Indication: PREMEDICATION
     Dosage: 100.0MG ONCE/SINGLE ADMINISTRATION
     Dates: start: 20120723, end: 20120723
  4. MEFENAMIC ACID. [Suspect]
     Active Substance: MEFENAMIC ACID
     Indication: SELF-MEDICATION
     Route: 065
     Dates: start: 20120724, end: 20120725
  5. MIDAZOLAM [Concomitant]
     Active Substance: MIDAZOLAM HYDROCHLORIDE
     Indication: ANAESTHESIA
     Dosage: 1.5MG ONCE/SINGLE ADMINISTRATION
     Dates: start: 20120723, end: 20120723
  6. PERFALGAN [Concomitant]
     Active Substance: ACETAMINOPHEN
     Indication: DRUG THERAPY
     Dates: start: 20120723, end: 20120723
  7. PROFENID [Suspect]
     Active Substance: KETOPROFEN
     Indication: DRUG THERAPY
     Dosage: 50.0MG UNKNOWN
     Route: 048
     Dates: start: 20120724, end: 20120724
  8. PROFENID [Suspect]
     Active Substance: KETOPROFEN
     Indication: DRUG THERAPY
     Dosage: 100.0MG UNKNOWN
     Route: 048
     Dates: start: 20120724
  9. ADVIL [Suspect]
     Active Substance: IBUPROFEN
     Indication: SELF-MEDICATION
     Dosage: 600 MG OF TOTAL DOSE
     Route: 048
     Dates: start: 20120724, end: 20120725
  10. PROFENID [Suspect]
     Active Substance: KETOPROFEN
     Indication: DRUG THERAPY
     Route: 048
     Dates: start: 20120723, end: 20120723
  11. CEFAZOLIN [Concomitant]
     Active Substance: CEFAZOLIN
     Indication: ANAESTHESIA
     Dosage: 2.0G UNKNOWN
     Dates: start: 20120723, end: 20120723
  12. MOPRAL [Suspect]
     Active Substance: OMEPRAZOLE
     Indication: DRUG THERAPY
     Dosage: 20.0MG ONCE/SINGLE ADMINISTRATION
     Route: 048
     Dates: start: 20120723, end: 20120723
  13. SUFENTA [Concomitant]
     Active Substance: SUFENTANIL CITRATE
     Indication: ANAESTHESIA
     Dosage: DOSE: 20GAMMA
     Dates: start: 20120723, end: 20120723

REACTIONS (2)
  - Tubulointerstitial nephritis [Recovered/Resolved]
  - Acute kidney injury [Recovered/Resolved]

NARRATIVE: CASE EVENT DATE: 20120725
